FAERS Safety Report 4668940-6 (Version None)
Quarter: 2005Q2

REPORT INFORMATION
  Report Type: 
  Country: None (occurrence: None)
  Receive Date: 20050523
  Receipt Date: 20040329
  Transmission Date: 20051028
  Serious: Yes (Other)
  Sender: FDA-Public Use
  Company Number: PHBS2004IT04474

PATIENT
  Age: 55 Year
  Sex: Male

DRUGS (7)
  1. ZOMETA [Suspect]
     Indication: METASTASES TO BONE
     Dosage: 4 MG, QMO
     Route: 042
     Dates: start: 20020527, end: 20040205
  2. TAXOL [Concomitant]
     Dates: start: 20020527, end: 20021202
  3. MITOXANTRONE [Concomitant]
     Dates: start: 20030130, end: 20031103
  4. DELTACORTENE [Concomitant]
     Dates: start: 20030130, end: 20031103
  5. METASTRON [Concomitant]
  6. ALDACTONE [Concomitant]
  7. NSAID'S [Concomitant]
     Dosage: UNK, PRN

REACTIONS (6)
  - INFLAMMATION [None]
  - ORAL SOFT TISSUE DISORDER [None]
  - OSTECTOMY [None]
  - OSTEONECROSIS [None]
  - PAIN [None]
  - PERIODONTAL DISEASE [None]
